FAERS Safety Report 5601280-7 (Version None)
Quarter: 2008Q1

REPORT INFORMATION
  Report Type: 
  Country: None (occurrence: None)
  Receive Date: 20080124
  Receipt Date: 20080118
  Transmission Date: 20080703
  Serious: Yes (Hospitalization, Disabling)
  Sender: FDA-Public Use
  Company Number: A0705210A

PATIENT
  Sex: Female

DRUGS (4)
  1. LAMICTAL [Suspect]
     Indication: DRUG USE FOR UNKNOWN INDICATION
     Route: 048
     Dates: start: 20061218
  2. ZITHROMAX [Suspect]
     Route: 065
     Dates: start: 20070105
  3. TOPAMAX [Concomitant]
     Indication: DRUG USE FOR UNKNOWN INDICATION
     Route: 065
     Dates: start: 20061218
  4. NEOSPORIN EYE DROPS [Concomitant]
     Indication: EYE INFECTION
     Route: 031
     Dates: start: 20061229, end: 20070102

REACTIONS (17)
  - ANXIETY [None]
  - BRAIN INJURY [None]
  - DRUG INTERACTION [None]
  - DYSPHAGIA [None]
  - EMOTIONAL DISORDER [None]
  - EYELID FUNCTION DISORDER [None]
  - INFECTION [None]
  - ORAL DISORDER [None]
  - PAIN [None]
  - PHYSICAL DISABILITY [None]
  - RESPIRATORY DISTRESS [None]
  - SCAR [None]
  - SKIN EXFOLIATION [None]
  - STEVENS-JOHNSON SYNDROME [None]
  - SWELLING FACE [None]
  - SWOLLEN TONGUE [None]
  - TRISMUS [None]
